FAERS Safety Report 23586544 (Version 2)
Quarter: 2025Q3

REPORT INFORMATION
  Report Type: Spontaneous
  Country: US (occurrence: None)
  Receive Date: 20240301
  Receipt Date: 20250922
  Transmission Date: 20251021
  Serious: No
  Sender: INCYTE
  Company Number: US-INCYTE CORPORATION-2024IN001972

PATIENT
  Age: 80 Year
  Weight: 85.283 kg

DRUGS (2)
  1. JAKAFI [Suspect]
     Active Substance: RUXOLITINIB
     Indication: Myelofibrosis
     Dosage: 15 MILLIGRAM, BID
  2. JAKAFI [Suspect]
     Active Substance: RUXOLITINIB
     Dosage: 15 MILLIGRAM, BID ((1 TABLET ONCE IN THE MORNING AND 1 TABLET ONCE AT BEDTIME)

REACTIONS (2)
  - Arthritis [Unknown]
  - Fluid retention [Unknown]
